FAERS Safety Report 23760701 (Version 1)
Quarter: 2024Q2

REPORT INFORMATION
  Report Type: Report from Study
  Country: GB (occurrence: GB)
  Receive Date: 20240419
  Receipt Date: 20240419
  Transmission Date: 20240715
  Serious: Yes (Hospitalization, Other)
  Sender: FDA-Public Use
  Company Number: GB-UCBSA-2024019113

PATIENT
  Sex: Female
  Weight: 3.014 kg

DRUGS (12)
  1. CERTOLIZUMAB PEGOL [Suspect]
     Active Substance: CERTOLIZUMAB PEGOL
     Indication: Juvenile idiopathic arthritis
     Dosage: 200 MILLIGRAM, EV 2 WEEKS(QOW)
     Route: 064
     Dates: start: 2021, end: 20220818
  2. CERTOLIZUMAB PEGOL [Suspect]
     Active Substance: CERTOLIZUMAB PEGOL
     Dosage: 200 MILLIGRAM, EV 2 WEEKS(QOW)
     Route: 063
     Dates: start: 20220818
  3. FOLIC ACID [Concomitant]
     Active Substance: FOLIC ACID
     Indication: Product used for unknown indication
     Dosage: UNK
     Route: 064
  4. FOLIC ACID [Concomitant]
     Active Substance: FOLIC ACID
     Dosage: UNK
     Route: 063
  5. PREGNACARE [ASCORBIC ACID;FOLIC ACID;NICOTINAMIDE;PYRIDOXINE;RIBOFLAVI [Concomitant]
     Indication: Product used for unknown indication
     Dosage: UNK
     Route: 064
  6. PREGNACARE [ASCORBIC ACID;FOLIC ACID;NICOTINAMIDE;PYRIDOXINE;RIBOFLAVI [Concomitant]
     Dosage: UNK
     Route: 063
  7. VITAMIN D3 [Concomitant]
     Active Substance: CHOLECALCIFEROL
     Indication: Alopecia
     Dosage: 4000 INTERNATIONAL UNIT, 3X/DAY (TID)
     Route: 064
     Dates: start: 202403
  8. VITAMIN D3 [Concomitant]
     Active Substance: CHOLECALCIFEROL
     Dosage: 4000 INTERNATIONAL UNIT, 3X/DAY (TID)
     Route: 063
     Dates: start: 202403
  9. ZINC [Concomitant]
     Active Substance: PYRITHIONE ZINC\ZINC\ZINC CHLORIDE
     Indication: Alopecia
     Dosage: 3X/DAY (TID)
     Route: 064
  10. ZINC [Concomitant]
     Active Substance: PYRITHIONE ZINC\ZINC\ZINC CHLORIDE
     Indication: Arthritis
     Dosage: 3X/DAY (TID)
     Route: 063
  11. FISH OIL [Concomitant]
     Active Substance: FISH OIL
     Indication: Alopecia
     Dosage: 2X/DAY (BID)
     Route: 064
  12. FISH OIL [Concomitant]
     Active Substance: FISH OIL
     Indication: Arthritis
     Dosage: 2X/DAY (BID)
     Route: 063

REACTIONS (7)
  - Foetal distress syndrome [Unknown]
  - Heart rate decreased [Unknown]
  - Infection [Unknown]
  - Abdominal pain [Recovered/Resolved]
  - Maternal exposure before pregnancy [Unknown]
  - Maternal exposure during pregnancy [Unknown]
  - Exposure via breast milk [Unknown]

NARRATIVE: CASE EVENT DATE: 20210101
